FAERS Safety Report 10576807 (Version 1)
Quarter: 2014Q4

REPORT INFORMATION
  Report Type: Spontaneous
  Country: None (occurrence: None)
  Receive Date: 20141110
  Receipt Date: 20141110
  Transmission Date: 20150529
  Serious: No
  Sender: FDA-Public Use
  Company Number: None

PATIENT
  Age: 32 Year
  Sex: Female
  Weight: 60.78 kg

DRUGS (1)
  1. MIRTAZAPINE 30 MG (MIRTAZAPINE) UNKNOWN, 30MG [Suspect]
     Active Substance: MIRTAZAPINE
     Indication: DEPRESSION
     Route: 048
     Dates: start: 20141025

REACTIONS (9)
  - Crying [None]
  - Dyspareunia [None]
  - Genital pain [None]
  - Breast pain [None]
  - Female sexual dysfunction [None]
  - Hormone level abnormal [None]
  - Weight increased [None]
  - Fluid retention [None]
  - Emotional disorder [None]

NARRATIVE: CASE EVENT DATE: 20141110
